FAERS Safety Report 9966013 (Version 1)
Quarter: 2014Q1

REPORT INFORMATION
  Report Type: Report from Study
  Country: US (occurrence: US)
  Receive Date: 20140305
  Receipt Date: 20140305
  Transmission Date: 20141002
  Serious: No
  Sender: FDA-Public Use
  Company Number: US-ABBVIE-13P-163-1127643-00

PATIENT
  Age: 71 Year
  Sex: Female

DRUGS (12)
  1. HUMIRA [Suspect]
     Indication: RHEUMATOID ARTHRITIS
     Dates: start: 201306
  2. METHOTREXATE [Concomitant]
     Dosage: EVERY WEDNESDAY
  3. MELOXICAM [Concomitant]
     Indication: RHEUMATOID ARTHRITIS
     Dosage: 15 MG DAILY
  4. GABAPENTIN [Concomitant]
     Indication: NEURALGIA
  5. PREMARIN [Concomitant]
     Indication: HORMONE REPLACEMENT THERAPY
     Dosage: 0.625 MG DAILY
  6. TOVIAZ [Concomitant]
     Indication: URINARY INCONTINENCE
     Dosage: 8 MG AT NIGHT
  7. LANSOPRAZOLE [Concomitant]
     Indication: AREFLEXIA
  8. SUFULCRATE [Concomitant]
     Indication: GASTRIC ULCER
     Dosage: 1 GM DAILY
  9. PANTOPRAZOLE [Concomitant]
     Indication: UNEVALUABLE EVENT
     Dosage: 40 MG DAILY
  10. FOLIC ACID [Concomitant]
     Indication: EYE DISORDER
  11. RESTASIS [Concomitant]
     Indication: EYE DISORDER
     Dosage: EACH EYE
  12. B12 [Concomitant]
     Indication: PRODUCT USED FOR UNKNOWN INDICATION
     Dosage: ONCE DAILY

REACTIONS (4)
  - Abasia [Not Recovered/Not Resolved]
  - Fall [Not Recovered/Not Resolved]
  - Pain [Not Recovered/Not Resolved]
  - Haematoma [Not Recovered/Not Resolved]
